FAERS Safety Report 13148709 (Version 3)
Quarter: 2017Q2

REPORT INFORMATION
  Report Type: Spontaneous
  Country: US (occurrence: US)
  Receive Date: 20170125
  Receipt Date: 20170411
  Transmission Date: 20170830
  Serious: No
  Sender: FDA-Public Use
  Company Number: US-PFIZER INC-2017030095

PATIENT
  Age: 68 Year
  Sex: Female
  Weight: 83.45 kg

DRUGS (3)
  1. IBRANCE [Suspect]
     Active Substance: PALBOCICLIB
     Indication: BREAST CANCER METASTATIC
     Dosage: 100 MG, CYCLIC (DAY 1 TO 21 DAYS EVERY 28 DAYS)
     Route: 048
     Dates: start: 20170111
  2. IBRANCE [Suspect]
     Active Substance: PALBOCICLIB
     Dosage: 100 MG, CYCLIC (DAY 1 TO 21 DAYS EVERY 28 DAYS)
     Route: 048
     Dates: end: 20170327
  3. IBRANCE [Suspect]
     Active Substance: PALBOCICLIB
     Dosage: 125 MG, CYCLIC (DAY 1 TO 21 DAYS EVERY 28 DAYS)
     Route: 048

REACTIONS (3)
  - Blood creatinine increased [Unknown]
  - Dehydration [Unknown]
  - Joint swelling [Unknown]
